FAERS Safety Report 8458546-5 (Version None)
Quarter: 2012Q2

REPORT INFORMATION
  Report Type: 
  Country: None (occurrence: None)
  Receive Date: 20120622
  Receipt Date: 20120618
  Transmission Date: 20120825
  Serious: No
  Sender: FDA-Public Use
  Company Number: US-PFIZER INC-2012147023

PATIENT
  Sex: Female
  Weight: 68 kg

DRUGS (1)
  1. DIFLUCAN [Suspect]
     Indication: FUNGAL INFECTION
     Dosage: 400 MG, 1X/DAY
     Route: 048
     Dates: start: 20120517, end: 20120517

REACTIONS (10)
  - FEELING ABNORMAL [None]
  - CARDIAC DISCOMFORT [None]
  - DYSSTASIA [None]
  - NAUSEA [None]
  - UNEVALUABLE EVENT [None]
  - TREMOR [None]
  - ARTHROPATHY [None]
  - MUSCULAR WEAKNESS [None]
  - DIZZINESS [None]
  - DYSKINESIA [None]
